FAERS Safety Report 8450477-X (Version None)
Quarter: 2012Q2

REPORT INFORMATION
  Report Type: 
  Country: None (occurrence: None)
  Receive Date: 20120613
  Receipt Date: 20120528
  Transmission Date: 20120825
  Serious: Yes (Hospitalization, Other)
  Sender: FDA-Public Use
  Company Number: 2011AP000335

PATIENT
  Age: 34 Year
  Sex: Male

DRUGS (18)
  1. COLCHICINE [Suspect]
     Indication: GOUT
     Dosage: 1 MG;UNKNOWN;TID 1 MG;UNKNOWN;BID 1 MG;UNKNOWN;QD
     Dates: start: 20091020, end: 20091020
  2. COLCHICINE [Suspect]
     Indication: GOUT
     Dosage: 1 MG;UNKNOWN;TID 1 MG;UNKNOWN;BID 1 MG;UNKNOWN;QD
     Dates: start: 20091021, end: 20091022
  3. COLCHICINE [Suspect]
     Indication: GOUT
     Dosage: 1 MG;UNKNOWN;TID 1 MG;UNKNOWN;BID 1 MG;UNKNOWN;QD
     Dates: start: 20091023, end: 20091028
  4. HYDROCORTONE [Concomitant]
  5. BACTRIM [Concomitant]
  6. CALCIUM CARBONATE [Concomitant]
  7. COLIMYCIN /00013206/ (COLISTIMETHATE SODIUM) [Concomitant]
  8. PRAVASTATIN SODIUM [Suspect]
     Indication: CORONARY ARTERY DISEASE
     Dosage: 20 MG;UNKNOWN;QD
  9. ESOMEPRAZOLE SODIUM (ESOMEPRAZOLE SODIUM) [Concomitant]
  10. IRBESARTAN (IRBESARTAN) [Concomitant]
  11. CHOLECALCIFEROL (COLECALCIFEROL) [Concomitant]
  12. CYCLOSPORINE [Suspect]
     Indication: PRODUCT USED FOR UNKNOWN INDICATION
     Dosage: 170 MG;UNKNOWN;BID
  13. AZITHROMYCIN [Suspect]
     Indication: BRONCHIOLITIS
     Dosage: 250 MG;UNKNOWN;QD
  14. EVEROLIMUS (EVEROLIMUS) [Concomitant]
  15. ACETYLSALICYLATE LYSINE (ACETYLSALICYLATE LYSINE) [Concomitant]
  16. FERROUS ASCORBATE (FERROUS ASCORBATE) [Concomitant]
  17. NICORANDIL (NICORANDIL) [Concomitant]
  18. TOCOPHEROL (TOCOPHEROL) [Concomitant]

REACTIONS (19)
  - COUGH [None]
  - EJECTION FRACTION DECREASED [None]
  - GOUT [None]
  - RESPIRATORY RATE INCREASED [None]
  - DRUG INTERACTION [None]
  - DYSPNOEA [None]
  - DIARRHOEA [None]
  - RENAL FAILURE [None]
  - CYTOLYTIC HEPATITIS [None]
  - RHABDOMYOLYSIS [None]
  - TOXICITY TO VARIOUS AGENTS [None]
  - LEUKOCYTOSIS [None]
  - ACUTE RESPIRATORY FAILURE [None]
  - GASTROINTESTINAL DISORDER [None]
  - HEART RATE INCREASED [None]
  - LYMPHOPENIA [None]
  - LEFT VENTRICULAR FAILURE [None]
  - BLOOD PRESSURE INCREASED [None]
  - HAEMOPTYSIS [None]
